FAERS Safety Report 6091093-7 (Version None)
Quarter: 2009Q1

REPORT INFORMATION
  Report Type: 
  Country: None (occurrence: None)
  Receive Date: 20090225
  Receipt Date: 20090219
  Transmission Date: 20090719
  Serious: Yes (Other)
  Sender: FDA-Public Use
  Company Number: GB-JNJFOC-20090205008

PATIENT
  Sex: Female

DRUGS (3)
  1. RISPERDAL [Suspect]
     Indication: BIPOLAR DISORDER
     Dosage: 'INITIATED THREE WEEKS AGO'
     Route: 048
  2. CLOZAPINE [Concomitant]
     Route: 065
  3. VALPROATE SODIUM [Concomitant]
     Route: 065

REACTIONS (1)
  - HYPONATRAEMIA [None]
